FAERS Safety Report 6435996-X (Version None)
Quarter: 2009Q4

REPORT INFORMATION
  Report Type: 
  Country: None (occurrence: None)
  Receive Date: 20091111
  Receipt Date: 20091102
  Transmission Date: 20100525
  Serious: Yes (Other)
  Sender: FDA-Public Use
  Company Number: US-JNJFOC-20091101038

PATIENT
  Age: 88 Year
  Sex: Female
  Weight: 81.65 kg

DRUGS (10)
  1. EXTRA STRENGTH TYLENOL [Suspect]
     Route: 048
  2. EXTRA STRENGTH TYLENOL [Suspect]
     Indication: ARTHRALGIA
     Dosage: ^FOR YEARS^
     Route: 048
  3. COZAAR [Concomitant]
     Indication: HYPERTENSION
     Dosage: ^YEARS^
  4. LASIX [Concomitant]
     Indication: HYPERTENSION
     Dosage: ^YEARS^ IN THE AM
  5. METOPROLOL [Concomitant]
     Indication: HYPERTENSION
     Dosage: IN THE PM
  6. BENAZEPRIL HYDROCHLORIDE [Concomitant]
     Indication: HYPERTENSION
  7. CENTRUM SILVER [Concomitant]
     Indication: VITAMIN SUPPLEMENTATION
     Dosage: ^YEARS^
  8. VALIUM [Concomitant]
     Indication: DRUG USE FOR UNKNOWN INDICATION
     Dosage: ^YEARS^
  9. CALTRATE [Concomitant]
     Indication: MINERAL SUPPLEMENTATION
  10. ASPIRIN [Concomitant]
     Indication: PAIN

REACTIONS (5)
  - DIZZINESS [None]
  - HEADACHE [None]
  - HYPERTENSION [None]
  - OEDEMA PERIPHERAL [None]
  - VOMITING [None]
